FAERS Safety Report 11128966 (Version 1)
Quarter: 2015Q2

REPORT INFORMATION
  Report Type: Report from Study
  Country: BR (occurrence: BR)
  Receive Date: 20150521
  Receipt Date: 20150521
  Transmission Date: 20150821
  Serious: Yes (Death, Hospitalization, Other)
  Sender: FDA-Public Use
  Company Number: PHHY2015BR059730

PATIENT
  Age: 75 Year
  Sex: Female
  Weight: 43 kg

DRUGS (1)
  1. DIOVAN [Suspect]
     Active Substance: VALSARTAN
     Indication: HYPERTENSION
     Dosage: 1 DF, QD
     Route: 065
     Dates: start: 201502

REACTIONS (2)
  - Infarction [Fatal]
  - Emphysema [Fatal]

NARRATIVE: CASE EVENT DATE: 20150304
